FAERS Safety Report 14999396 (Version 1)
Quarter: 2018Q2

REPORT INFORMATION
  Report Type: Spontaneous
  Country: US (occurrence: US)
  Receive Date: 20180522
  Receipt Date: 20180522
  Transmission Date: 20180711
  Serious: Yes (Other)
  Sender: FDA-Public Use
  Company Number: None

PATIENT
  Age: 52 Year
  Sex: Male
  Weight: 87.75 kg

DRUGS (2)
  1. ADDERALL IR (GENERIC) [Concomitant]
  2. DEXTROAMPHET SACCHARAT, AMPHET ASPARTATE, DEXTROAMPHET SULFATE AND AMPHET SULFAT [Suspect]
     Active Substance: AMPHETAMINE ASPARTATE\AMPHETAMINE SULFATE\DEXTROAMPHETAMINE SACCHARATE\DEXTROAMPHETAMINE SULFATE
     Indication: ATTENTION DEFICIT/HYPERACTIVITY DISORDER
     Dosage: QUANTITY:1 DF DOSAGE FORM;OTHER FREQUENCY:2.5/DAY;?
     Route: 048
     Dates: start: 20080501

REACTIONS (5)
  - Loss of employment [None]
  - Product substitution issue [None]
  - Mental impairment [None]
  - Thinking abnormal [None]
  - Drug ineffective [None]

NARRATIVE: CASE EVENT DATE: 20170901
